FAERS Safety Report 19003720 (Version 1)
Quarter: 2021Q1

REPORT INFORMATION
  Report Type: Spontaneous
  Country: DE (occurrence: DE)
  Receive Date: 20210312
  Receipt Date: 20210312
  Transmission Date: 20210420
  Serious: Yes (Death, Life-Threatening, Hospitalization)
  Sender: FDA-Public Use
  Company Number: DE-TEVA-2021-DE-1888061

PATIENT
  Age: 94 Year
  Sex: Male

DRUGS (6)
  1. TORASEMID [Suspect]
     Active Substance: TORSEMIDE
     Dosage: 10 MILLIGRAM DAILY; 1?0?0?0
  2. RAMIPRIL. [Suspect]
     Active Substance: RAMIPRIL
     Dosage: UNIT DOSE :7.5 MG ,5 MG, 1?0?0.5?0
  3. VITAMIN B12 1000 UG INJECT JENAPHARM [Concomitant]
     Dosage: UNIT DOSE :100 MCG,1000 UG / WEEK, MONDAYS
  4. FERRO SANOL 40MG DRAGEES [Concomitant]
     Dosage: 40 MILLIGRAM DAILY;  1?0?0?0
  5. SPIRONOLACTON [Suspect]
     Active Substance: SPIRONOLACTONE
     Dosage: .5 DOSAGE FORMS DAILY; 50 MG, 0.5?0?0?0
  6. SALBUTAMOL [Concomitant]
     Active Substance: ALBUTEROL
     Dosage: 0.1 MG, IF NECESSARY

REACTIONS (3)
  - Scrotal oedema [Unknown]
  - Dyspnoea [Unknown]
  - Oedema peripheral [Unknown]
